FAERS Safety Report 7705704-0 (Version None)
Quarter: 2011Q3

REPORT INFORMATION
  Report Type: 
  Country: None (occurrence: None)
  Receive Date: 20110824
  Receipt Date: 20110812
  Transmission Date: 20111222
  Serious: Yes (Hospitalization)
  Sender: FDA-Public Use
  Company Number: IT-SANOFI-AVENTIS-2011SA044084

PATIENT
  Age: 70 Year
  Sex: Male
  Weight: 63 kg

DRUGS (7)
  1. WARFARIN SODIUM [Concomitant]
     Route: 065
  2. DRONEDARONE HCL [Suspect]
     Indication: ATRIAL FIBRILLATION
     Route: 048
     Dates: start: 20110223
  3. AMLODIPINE [Concomitant]
     Route: 065
  4. TOBRAMYCIN [Concomitant]
     Route: 065
     Dates: start: 20110318
  5. DEXAMETHASONE [Concomitant]
     Route: 065
     Dates: start: 20110318
  6. ATENOLOL [Concomitant]
     Route: 065
  7. RAMIPRIL [Concomitant]
     Route: 065

REACTIONS (1)
  - SYNCOPE [None]
